FAERS Safety Report 21562271 (Version 1)
Quarter: 2022Q4

REPORT INFORMATION
  Report Type: Spontaneous
  Country: US (occurrence: None)
  Receive Date: 20221104
  Receipt Date: 20221104
  Transmission Date: 20230113
  Serious: Yes (Hospitalization)
  Sender: FDA-Public Use
  Company Number: None

PATIENT
  Age: 61 Year
  Sex: Female

DRUGS (1)
  1. AUBAGIO [Suspect]
     Active Substance: TERIFLUNOMIDE
     Indication: Multiple sclerosis
     Dosage: 14MG DAILY ORAL?
     Route: 048
     Dates: start: 202107

REACTIONS (3)
  - Loss of consciousness [None]
  - Transient ischaemic attack [None]
  - Therapy interrupted [None]

NARRATIVE: CASE EVENT DATE: 20221103
